FAERS Safety Report 9520423 (Version 1)
Quarter: 2013Q3

REPORT INFORMATION
  Report Type: Report from Study
  Country: BR (occurrence: BR)
  Receive Date: 20130912
  Receipt Date: 20130912
  Transmission Date: 20140515
  Serious: No
  Sender: FDA-Public Use
  Company Number: PHHY2013BR093057

PATIENT
  Age: 48 Year
  Sex: Female

DRUGS (5)
  1. SOM230 [Suspect]
     Indication: CUSHING^S SYNDROME
     Route: 058
  2. METFORMINE [Concomitant]
  3. HYDROCHLOROTHIAZIDE [Concomitant]
  4. CAPTORIL [Concomitant]
  5. AMLODIPINE [Concomitant]

REACTIONS (1)
  - Hyperglycaemia [Unknown]
